FAERS Safety Report 5574549-2 (Version None)
Quarter: 2007Q4

REPORT INFORMATION
  Report Type: 
  Country: None (occurrence: None)
  Receive Date: 20071227
  Receipt Date: 20071214
  Transmission Date: 20080405
  Serious: Yes (Hospitalization)
  Sender: FDA-Public Use
  Company Number: FR-TEVA-165378ISR

PATIENT
  Age: 57 Year
  Sex: Male

DRUGS (3)
  1. FLUOROURACIL [Suspect]
     Indication: TONGUE NEOPLASM
     Route: 042
     Dates: start: 20070806, end: 20071029
  2. DOCETAXEL [Suspect]
     Indication: TONGUE NEOPLASM
     Route: 042
     Dates: start: 20070806, end: 20071029
  3. CISPLATIN [Suspect]
     Indication: TONGUE NEOPLASM
     Dates: start: 20070806, end: 20071029

REACTIONS (3)
  - ANAEMIA [None]
  - DEHYDRATION [None]
  - RENAL FAILURE ACUTE [None]
